FAERS Safety Report 5434267-8 (Version None)
Quarter: 2007Q3

REPORT INFORMATION
  Report Type: 
  Country: None (occurrence: None)
  Receive Date: 20070828
  Receipt Date: 20070828
  Transmission Date: 20080115
  Serious: Yes (Hospitalization)
  Sender: FDA-Public Use
  Company Number: None

PATIENT
  Sex: Female
  Weight: 63.7 kg

DRUGS (2)
  1. CISPLATIN [Suspect]
     Indication: EPIGLOTTIC CARCINOMA
     Dosage: 100MG/M2 Q3WEEKS
     Dates: start: 20070731
  2. CETUXIMAB [Suspect]
     Indication: EPIGLOTTIC CARCINOMA
     Dosage: 250MG/M2 IV QW
     Route: 042
     Dates: start: 20070731, end: 20070827

REACTIONS (1)
  - HYPERNATRAEMIA [None]
